FAERS Safety Report 15150151 (Version 1)
Quarter: 2018Q3

REPORT INFORMATION
  Report Type: Spontaneous
  Country: US (occurrence: US)
  Receive Date: 20180716
  Receipt Date: 20180716
  Transmission Date: 20181010
  Serious: Yes (Death, Life-Threatening, Hospitalization, Other)
  Sender: FDA-Public Use
  Company Number: US-BRISTOL-MYERS SQUIBB COMPANY-BMS-2018-066591

PATIENT
  Sex: Female

DRUGS (1)
  1. OPDIVO [Suspect]
     Active Substance: NIVOLUMAB
     Indication: METASTATIC RENAL CELL CARCINOMA
     Dosage: 1
     Route: 065
     Dates: start: 20171221, end: 20171221

REACTIONS (9)
  - Pneumonia [Unknown]
  - Pyrexia [Recovered/Resolved]
  - Syncope [Unknown]
  - Blood pressure decreased [Unknown]
  - Respiratory failure [Fatal]
  - Pneumonitis [Fatal]
  - Sepsis [Unknown]
  - Chills [Unknown]
  - Gangrene [Unknown]
